FAERS Safety Report 7704431-3 (Version None)
Quarter: 2011Q3

REPORT INFORMATION
  Report Type: 
  Country: None (occurrence: None)
  Receive Date: 20110823
  Receipt Date: 20110810
  Transmission Date: 20111222
  Serious: Yes (Other)
  Sender: FDA-Public Use
  Company Number: FR-PFIZER INC-2011183576

PATIENT
  Age: 50 Year
  Sex: Male

DRUGS (5)
  1. CYTARABINE [Suspect]
     Dosage: 1000 MG/M2, 2X/DAY
     Route: 042
     Dates: start: 20081120, end: 20081124
  2. GEMTUZUMAB OZOGAMICIN [Suspect]
     Indication: ACUTE MYELOID LEUKAEMIA
     Dosage: 6 MG/M2, 1X/DAY
     Route: 042
     Dates: start: 20081011, end: 20081011
  3. CYTARABINE [Suspect]
     Indication: ACUTE MYELOID LEUKAEMIA
     Dosage: 1000 MG/M2, 2X/DAY
     Route: 042
     Dates: start: 20081008, end: 20081012
  4. NOVANTRONE [Suspect]
     Dosage: 12 MG/M2, 1X/DAY
     Route: 042
     Dates: start: 20081120, end: 20081121
  5. NOVANTRONE [Suspect]
     Indication: ACUTE MYELOID LEUKAEMIA
     Dosage: 12 MG/M2, 1X/DAY
     Route: 042
     Dates: start: 20081008, end: 20081009

REACTIONS (1)
  - CYTOLYTIC HEPATITIS [None]
